FAERS Safety Report 10724564 (Version 3)
Quarter: 2015Q1

REPORT INFORMATION
  Report Type: Spontaneous
  Country: IT (occurrence: None)
  Receive Date: 20150115
  Receipt Date: 20150205
  Transmission Date: 20150721
  Serious: Yes (Other)
  Sender: FDA-Public Use
  Company Number: 8004667

PATIENT
  Age: 83 Year
  Sex: Female

DRUGS (2)
  1. PANTOPRAZOLE [Suspect]
     Active Substance: PANTOPRAZOLE SODIUM
     Indication: HIATUS HERNIA
     Dosage: 1 DF, ORAL
     Route: 048
     Dates: start: 20140101, end: 20141231
  2. EUTIROX [Suspect]
     Active Substance: LEVOTHYROXINE SODIUM
     Indication: HYPOTHYROIDISM
     Dosage: 1 DF (1 IN 1 D), ORAL
     Route: 048
     Dates: start: 20140101, end: 20141231

REACTIONS (4)
  - Oedema [None]
  - Rash erythematous [None]
  - Rash [None]
  - Pruritus generalised [None]

NARRATIVE: CASE EVENT DATE: 20141230
